FAERS Safety Report 9116839 (Version 3)
Quarter: 2013Q2

REPORT INFORMATION
  Report Type: Report from Study
  Country: CA (occurrence: CA)
  Receive Date: 20130225
  Receipt Date: 20130503
  Transmission Date: 20140414
  Serious: Yes (Death, Hospitalization, Other)
  Sender: FDA-Public Use
  Company Number: PHHY2013CA017779

PATIENT
  Sex: Female

DRUGS (7)
  1. ACLASTA [Suspect]
     Indication: OSTEOPOROSIS
     Dosage: UNK
     Route: 042
     Dates: start: 20110102
  2. ACLASTA [Suspect]
     Dosage: UNK
     Route: 042
     Dates: start: 20120417
  3. ACLASTA [Suspect]
     Dosage: UNK
     Route: 042
     Dates: start: 201301
  4. COUMADINE [Concomitant]
     Dosage: UNK UKN, UNK
  5. LOPRESSOR [Concomitant]
     Dosage: UNK UKN, UNK
  6. SYNTHROID [Concomitant]
     Dosage: UNK UKN, UNK
  7. EFFEXOR [Concomitant]
     Dosage: UNK UKN, UNK

REACTIONS (7)
  - Cardiac disorder [Fatal]
  - Myocardial infarction [Fatal]
  - Clostridium difficile colitis [Fatal]
  - Lymphadenopathy [Unknown]
  - Eating disorder [Unknown]
  - Fatigue [Unknown]
  - Inappropriate schedule of drug administration [Unknown]
